FAERS Safety Report 14296606 (Version 2)
Quarter: 2017Q4

REPORT INFORMATION
  Report Type: Report from Study
  Country: None (occurrence: CO)
  Receive Date: 20171218
  Receipt Date: 20171229
  Transmission Date: 20180321
  Serious: Yes (Hospitalization)
  Sender: FDA-Public Use
  Company Number: CO-ABBVIE-17S-036-2195989-00

PATIENT
  Sex: Male
  Weight: 60 kg

DRUGS (1)
  1. VIEKIRA PAK [Suspect]
     Active Substance: DASABUVIR\OMBITASVIR\PARITAPREVIR\RITONAVIR
     Indication: HEPATITIS C
     Dosage: 3 TAB AM, 1 TAB PM
     Route: 048
     Dates: start: 20170922, end: 20171214

REACTIONS (3)
  - Hypoglycaemia [Unknown]
  - Loss of consciousness [Recovering/Resolving]
  - Hypotension [Recovering/Resolving]

NARRATIVE: CASE EVENT DATE: 20171212
